FAERS Safety Report 4501798-4 (Version None)
Quarter: 2004Q3

REPORT INFORMATION
  Report Type: 
  Country: None (occurrence: None)
  Receive Date: 20040928
  Receipt Date: 20040601
  Transmission Date: 20050211
  Serious: No
  Sender: FDA-Public Use
  Company Number: 04P-163-0262463-00

PATIENT
  Age: 60 Year
  Sex: Female
  Weight: 147.419 kg

DRUGS (23)
  1. HUMIRA [Suspect]
     Indication: PSORIATIC ARTHROPATHY
     Dosage: 40 MG, 1 IN 2 WK, SUBCUTANEOUS
     Route: 058
     Dates: start: 20040513
  2. HUMIRA [Suspect]
     Indication: RHEUMATOID ARTHRITIS
     Dosage: 40 MG, 1 IN 2 WK, SUBCUTANEOUS
     Route: 058
     Dates: start: 20040513
  3. FUROSEMIDE [Concomitant]
  4. TRIAMCINOLONE [Concomitant]
  5. METOPROLOL SUCCINATE [Concomitant]
  6. METFORMIN HCL [Concomitant]
  7. DIOVAN [Concomitant]
  8. DILTIAZEM [Concomitant]
  9. ATORVASTATIN CALCIUM [Concomitant]
  10. COUMADIN [Concomitant]
  11. ESOMEPRAZOLE [Concomitant]
  12. PILOCARPINE HYDROCHLORIDE [Concomitant]
  13. SULFASALAZINE [Concomitant]
  14. GABAPENTIN [Concomitant]
  15. FOLTYX [Concomitant]
  16. DIGOXIN [Concomitant]
  17. INSULIN GLARGINE [Concomitant]
  18. INSULIN HUMAN [Concomitant]
  19. VICODIN [Concomitant]
  20. OXYCONTIN [Concomitant]
  21. ARTHROTEC [Concomitant]
  22. OXYCODONE HCL [Concomitant]
  23. PNEUMOVAX 23 [Concomitant]

REACTIONS (2)
  - DYSPNOEA [None]
  - INCREASED UPPER AIRWAY SECRETION [None]
